FAERS Safety Report 7261877-8 (Version None)
Quarter: 2011Q1

REPORT INFORMATION
  Report Type: 
  Country: None (occurrence: None)
  Receive Date: 20110130
  Receipt Date: 20101130
  Transmission Date: 20110831
  Serious: No
  Sender: FDA-Public Use
  Company Number: US-ABBOTT-10P-163-0688762-00

PATIENT
  Sex: Female
  Weight: 49.94 kg

DRUGS (8)
  1. ASACOL [Concomitant]
     Indication: CROHN'S DISEASE
  2. ATENOLOL [Concomitant]
     Indication: HEADACHE
  3. HUMIRA [Suspect]
     Indication: RHEUMATOID ARTHRITIS
  4. FOLIC ACID [Concomitant]
     Indication: IRON DEFICIENCY
  5. MULTIVITAMIN [Concomitant]
     Indication: PRODUCT USED FOR UNKNOWN INDICATION
  6. HUMIRA [Suspect]
     Indication: CROHN'S DISEASE
  7. NASONEX [Concomitant]
     Indication: HYPERSENSITIVITY
  8. DOXYCYCLINE [Concomitant]
     Indication: ACNE

REACTIONS (1)
  - ARTHRALGIA [None]
